FAERS Safety Report 21418765 (Version 1)
Quarter: 2022Q4

REPORT INFORMATION
  Report Type: Spontaneous
  Country: US (occurrence: None)
  Receive Date: 20221005
  Receipt Date: 20221005
  Transmission Date: 20230113
  Serious: Yes (Hospitalization)
  Sender: FDA-Public Use
  Company Number: None

PATIENT
  Sex: Female

DRUGS (4)
  1. REPATHA [Suspect]
     Active Substance: EVOLOCUMAB
     Indication: Hyperlipidaemia
     Dosage: FREQUENCY : EVERY OTHER WEEK;?
     Route: 058
     Dates: start: 20200226
  2. ELIQUIS [Concomitant]
     Active Substance: APIXABAN
  3. PLAVIX TAB [Concomitant]
  4. VICTOZA INJ [Concomitant]

REACTIONS (2)
  - Surgery [None]
  - Therapy interrupted [None]
